FAERS Safety Report 9525149 (Version 1)
Quarter: 2013Q1

REPORT INFORMATION
  Report Type: Spontaneous
  Country: US (occurrence: None)
  Receive Date: 20130305
  Receipt Date: 20130305
  Transmission Date: 20140127
  Serious: Yes (Hospitalization, Other)
  Sender: FDA-Public Use
  Company Number: 163-21880-12030110

PATIENT
  Age: 71 Year
  Sex: Male

DRUGS (6)
  1. REVLIMID [Suspect]
     Indication: PLASMA CELL MYELOMA
     Dosage: 10 MG, QD, PO
     Route: 048
     Dates: start: 200812
  2. CYMBALTA (DULOXETINE HYDROCHLORIDE) (UNKNOWN) [Concomitant]
  3. COUMADIN (WARFARIN SODIUM) (UNKNOWN) [Concomitant]
  4. XANAX (ALPRAZOLAM) (UNKNOWN) [Concomitant]
  5. HUMULIN R (INSULIN HUMAN) (UNKNOWN) [Concomitant]
  6. FLUCONAZOLE (FLUCONAZOLE) (UNKNOWN) [Concomitant]

REACTIONS (8)
  - Pneumonia [None]
  - Candida infection [None]
  - Chronic obstructive pulmonary disease [None]
  - Emphysema [None]
  - Pancytopenia [None]
  - Renal failure [None]
  - Respiratory failure [None]
  - Neuropathy peripheral [None]
